FAERS Safety Report 20572247 (Version 2)
Quarter: 2022Q2

REPORT INFORMATION
  Report Type: Spontaneous
  Country: JP (occurrence: JP)
  Receive Date: 20220309
  Receipt Date: 20220615
  Transmission Date: 20220720
  Serious: Yes (Death, Other)
  Sender: FDA-Public Use
  Company Number: JP-ELI_LILLY_AND_COMPANY-JP202203001834

PATIENT
  Age: 66 Year
  Sex: Male
  Weight: 69 kg

DRUGS (4)
  1. NECITUMUMAB [Suspect]
     Active Substance: NECITUMUMAB
     Indication: Lung squamous cell carcinoma stage III
     Dosage: 800 MG, UNKNOWN
     Route: 041
     Dates: start: 20201201, end: 20201208
  2. GEMCITABINE HYDROCHLORIDE [Concomitant]
     Active Substance: GEMCITABINE HYDROCHLORIDE
     Indication: Lung squamous cell carcinoma stage III
     Dosage: UNK
     Dates: start: 20201201
  3. CISPLATIN [Concomitant]
     Active Substance: CISPLATIN
     Indication: Lung squamous cell carcinoma stage III
     Dosage: UNK
     Dates: start: 20201201
  4. MAGNESIUM SULFATE [Concomitant]
     Active Substance: MAGNESIUM SULFATE
     Indication: Electrolyte substitution therapy
     Dosage: UNK
     Dates: start: 20201201, end: 20201201

REACTIONS (2)
  - Malignant neoplasm progression [Fatal]
  - Dermatitis acneiform [Recovering/Resolving]

NARRATIVE: CASE EVENT DATE: 20201221
